FAERS Safety Report 25984682 (Version 1)
Quarter: 2025Q4

REPORT INFORMATION
  Report Type: Spontaneous
  Country: CN (occurrence: CN)
  Receive Date: 20251031
  Receipt Date: 20251031
  Transmission Date: 20260117
  Serious: Yes (Hospitalization)
  Sender: EISAI
  Company Number: CN-Eisai-EC-2025-198770

PATIENT
  Age: 32 Year
  Sex: Female
  Weight: 60 kg

DRUGS (2)
  1. LEMBOREXANT [Suspect]
     Active Substance: LEMBOREXANT
     Indication: Depression
     Dosage: DOSE UNKNOWN (14 TABLETS, ONCE)
     Route: 048
  2. ZOLPIDEM TARTRATE [Suspect]
     Active Substance: ZOLPIDEM TARTRATE
     Indication: Depression
     Route: 048
     Dates: start: 20251020

REACTIONS (3)
  - Muscular weakness [Recovering/Resolving]
  - Somnolence [Recovering/Resolving]
  - Overdose [Recovering/Resolving]

NARRATIVE: CASE EVENT DATE: 20251020
